FAERS Safety Report 25790432 (Version 1)
Quarter: 2025Q3

REPORT INFORMATION
  Report Type: Spontaneous
  Country: EU (occurrence: EU)
  Receive Date: 20250911
  Receipt Date: 20250911
  Transmission Date: 20251020
  Serious: Yes (Life-Threatening, Hospitalization)
  Sender: RANBAXY
  Company Number: EU-SUN PHARMACEUTICAL INDUSTRIES LTD-2025RR-526826

PATIENT
  Sex: Male

DRUGS (5)
  1. ACETAMINOPHEN [Suspect]
     Active Substance: ACETAMINOPHEN
     Indication: Poisoning deliberate
     Dosage: 12 GRAM, 1 DOSE
     Route: 048
  2. IBUPROFEN [Suspect]
     Active Substance: IBUPROFEN
     Indication: Poisoning deliberate
     Route: 048
  3. DESLORATADINE [Suspect]
     Active Substance: DESLORATADINE
     Indication: Poisoning deliberate
     Dosage: 15 DOSAGE FORM, 1 DOSE
     Route: 048
  4. TRAMADOL [Suspect]
     Active Substance: TRAMADOL
     Indication: Poisoning deliberate
     Dosage: 18 DOSAGE FORM, 1 DOSE
     Route: 048
  5. LAMALINE (ACETAMINOPHEN\CAFFEINE\OPIUM) [Suspect]
     Active Substance: ACETAMINOPHEN\CAFFEINE\OPIUM
     Indication: Poisoning deliberate
     Dosage: 34 DOSAGE FORM, 1 DOSE
     Route: 048

REACTIONS (3)
  - Poisoning deliberate [Recovered/Resolved]
  - Hepatitis acute [Unknown]
  - Renal tubular necrosis [Unknown]
